FAERS Safety Report 5556853-7 (Version None)
Quarter: 2007Q4

REPORT INFORMATION
  Report Type: 
  Country: None (occurrence: None)
  Receive Date: 20071212
  Receipt Date: 20071212
  Transmission Date: 20080405
  Serious: Yes (Other)
  Sender: FDA-Public Use
  Company Number: None

PATIENT
  Age: 49 Year
  Sex: Male

DRUGS (2)
  1. MORPHINE [Suspect]
     Indication: PAIN
  2. OXYCONTIN [Suspect]
     Indication: PAIN

REACTIONS (2)
  - LOSS OF CONSCIOUSNESS [None]
  - SKIN DISCOLOURATION [None]
